FAERS Safety Report 19624278 (Version 2)
Quarter: 2021Q4

REPORT INFORMATION
  Report Type: Spontaneous
  Country: US (occurrence: US)
  Receive Date: 20210729
  Receipt Date: 20211103
  Transmission Date: 20220303
  Serious: No
  Sender: FDA-Public Use
  Company Number: US-TEVA-2021-US-1936903

PATIENT
  Age: 69 Year
  Sex: Female

DRUGS (1)
  1. PROVIGIL [Suspect]
     Active Substance: MODAFINIL
     Route: 065

REACTIONS (4)
  - COVID-19 [Unknown]
  - Fibromyalgia [Unknown]
  - Depression [Unknown]
  - Confusional state [Unknown]
